FAERS Safety Report 10469800 (Version 1)
Quarter: 2014Q3

REPORT INFORMATION
  Report Type: Spontaneous
  Country: US (occurrence: None)
  Receive Date: 20140922
  Receipt Date: 20140922
  Transmission Date: 20150326
  Serious: No
  Sender: FDA-Public Use
  Company Number: None

PATIENT
  Age: 63 Year
  Sex: Female

DRUGS (1)
  1. HUMIRA [Suspect]
     Active Substance: ADALIMUMAB
     Indication: RHEUMATOID ARTHRITIS
     Dosage: 40 MG  EVERY 2 WEEKS  SQ
     Route: 058
     Dates: start: 20140605

REACTIONS (3)
  - Injection site urticaria [None]
  - Rash generalised [None]
  - Hypersensitivity [None]
